FAERS Safety Report 20493043 (Version 4)
Quarter: 2022Q1

REPORT INFORMATION
  Report Type: Spontaneous
  Country: US (occurrence: US)
  Receive Date: 20220220
  Receipt Date: 20220321
  Transmission Date: 20220423
  Serious: No
  Sender: FDA-Public Use
  Company Number: US-GLAXOSMITHKLINE-US2022AMR028664

PATIENT
  Age: 59 Year
  Sex: Female

DRUGS (2)
  1. ZEJULA [Suspect]
     Active Substance: NIRAPARIB
     Indication: Retroperitoneal cancer
     Dosage: 200 MG, QD
     Route: 048
     Dates: start: 20220214, end: 20220302
  2. ZEJULA [Suspect]
     Active Substance: NIRAPARIB
     Indication: Malignant peritoneal neoplasm

REACTIONS (11)
  - Tinnitus [Not Recovered/Not Resolved]
  - Palpitations [Unknown]
  - Chest pain [Unknown]
  - Abdominal pain upper [Recovering/Resolving]
  - Blood pressure increased [Recovering/Resolving]
  - Stomatitis [Unknown]
  - Gastric dilatation [Unknown]
  - Discomfort [Unknown]
  - Abdominal distension [Unknown]
  - Off label use [Unknown]
  - Product dose omission issue [Unknown]

NARRATIVE: CASE EVENT DATE: 20220201
